FAERS Safety Report 9908798 (Version 3)
Quarter: 2014Q2

REPORT INFORMATION
  Report Type: Spontaneous
  Country: US (occurrence: US)
  Receive Date: 20140219
  Receipt Date: 20140407
  Transmission Date: 20141212
  Serious: No
  Sender: FDA-Public Use
  Company Number: US-PFIZER INC-2014048101

PATIENT
  Age: 65 Year
  Sex: Female
  Weight: 105.67 kg

DRUGS (11)
  1. SERTRALINE HCL [Suspect]
     Indication: MAJOR DEPRESSION
     Dosage: 150 MG, DAILY
     Dates: start: 2008
  2. SERTRALINE HCL [Suspect]
     Indication: OBSESSIVE-COMPULSIVE DISORDER
  3. SERTRALINE HCL [Suspect]
     Indication: MANIA
  4. SERTRALINE HCL [Suspect]
     Indication: BIPOLAR I DISORDER
  5. LECITHIN [Concomitant]
     Dosage: UNK
  6. LAMICTAL [Concomitant]
     Dosage: 250 MG, DAILY
  7. CLONAZEPAM [Concomitant]
     Dosage: 2 MG, UNK
  8. BENICAR HCT [Concomitant]
     Dosage: HYDROCHLOROTHIAZIDE 40 MG/ OLMESARTAN MEDOXOMIL 12.5MG, UNK
  9. FISH OIL [Concomitant]
     Dosage: UNK
  10. B-12 [Concomitant]
     Dosage: UNK
  11. NIACIN [Concomitant]
     Dosage: UNK

REACTIONS (11)
  - Malaise [Unknown]
  - Heart rate increased [Unknown]
  - Palpitations [Unknown]
  - Anxiety [Unknown]
  - Nausea [Unknown]
  - Tremor [Unknown]
  - Hyperhidrosis [Unknown]
  - Dizziness [Unknown]
  - Reaction to drug excipients [Unknown]
  - Drug effect incomplete [Unknown]
  - Intentional product misuse [Unknown]
